FAERS Safety Report 4918991-9 (Version None)
Quarter: 2006Q1

REPORT INFORMATION
  Report Type: 
  Country: None (occurrence: None)
  Receive Date: 20060222
  Receipt Date: 20060120
  Transmission Date: 20060701
  Serious: Yes (Other)
  Sender: FDA-Public Use
  Company Number: US-AMGEN-STX165830

PATIENT
  Age: 64 Year
  Sex: Male

DRUGS (7)
  1. ENBREL [Suspect]
     Indication: PUSTULAR PSORIASIS
     Route: 058
     Dates: start: 20051215
  2. DITHRANOL [Concomitant]
  3. LIPITOR [Concomitant]
     Route: 048
  4. TOPROL-XL [Concomitant]
     Route: 048
  5. ASPIRIN [Concomitant]
     Route: 048
  6. FLOMAX [Concomitant]
  7. ALFUZOSIN [Concomitant]
     Route: 048

REACTIONS (4)
  - CONDITION AGGRAVATED [None]
  - DIFFICULTY IN WALKING [None]
  - OFF LABEL USE [None]
  - PUSTULAR PSORIASIS [None]
